FAERS Safety Report 5179848-4 (Version None)
Quarter: 2006Q4

REPORT INFORMATION
  Report Type: 
  Country: None (occurrence: None)
  Receive Date: 20061219
  Receipt Date: 20061022
  Transmission Date: 20070319
  Serious: No
  Sender: FDA-Public Use
  Company Number: US-AMGEN-KDL193760

PATIENT
  Sex: Male

DRUGS (4)
  1. ENBREL [Suspect]
     Indication: PSORIASIS
     Route: 058
     Dates: start: 20040201
  2. HCT [Concomitant]
  3. MONOPRIL [Concomitant]
  4. COVERA-HS [Concomitant]

REACTIONS (2)
  - CONDITION AGGRAVATED [None]
  - GOUT [None]
